FAERS Safety Report 7263566-2 (Version None)
Quarter: 2011Q1

REPORT INFORMATION
  Report Type: 
  Country: None (occurrence: None)
  Receive Date: 20110130
  Receipt Date: 20101028
  Transmission Date: 20110831
  Serious: No
  Sender: FDA-Public Use
  Company Number: US-ABBOTT-10P-163-0681954-00

PATIENT
  Sex: Male

DRUGS (5)
  1. VESICARE [Concomitant]
     Indication: PRODUCT USED FOR UNKNOWN INDICATION
     Dosage: SUPPOSED TO BE DAILY, BUT TAKE IT 1 OR 2 TIMES A WEEK
  2. TRIAMCINOLONE [Concomitant]
     Indication: PSORIASIS
     Dosage: DAILY
  3. 2-3 UNKNOWN CREAMS [Concomitant]
     Indication: PSORIASIS
     Dosage: DAILY
  4. HUMIRA [Suspect]
     Indication: PSORIASIS
     Dates: start: 20101016
  5. CLOBETASOL [Concomitant]
     Indication: PSORIASIS
     Dosage: DAILY

REACTIONS (1)
  - PSORIASIS [None]
